FAERS Safety Report 7387394-2 (Version None)
Quarter: 2011Q1

REPORT INFORMATION
  Report Type: 
  Country: None (occurrence: None)
  Receive Date: 20110331
  Receipt Date: 20110328
  Transmission Date: 20110831
  Serious: Yes (Death)
  Sender: FDA-Public Use
  Company Number: PHHY2010CA19230

PATIENT
  Sex: Female

DRUGS (3)
  1. SANDOSTATIN LAR [Suspect]
     Indication: CARCINOID TUMOUR
     Dosage: 30 MG EVERY 4 WEEKS
     Route: 030
     Dates: start: 20100317
  2. OCTREOTIDE ACETATE [Suspect]
     Route: 058
  3. SANDOSTATIN LAR [Suspect]
     Dosage: 30 MG EVERY 4 WEEKS
     Route: 030
     Dates: end: 20110310

REACTIONS (3)
  - BLOOD PRESSURE SYSTOLIC INCREASED [None]
  - DEATH [None]
  - HEART RATE INCREASED [None]
